FAERS Safety Report 7199201-1 (Version None)
Quarter: 2010Q4

REPORT INFORMATION
  Report Type: 
  Country: None (occurrence: None)
  Receive Date: 20101228
  Receipt Date: 20101215
  Transmission Date: 20110411
  Serious: No
  Sender: FDA-Public Use
  Company Number: PHHY2010JP61584

PATIENT

DRUGS (8)
  1. CO-DIOVAN [Suspect]
     Indication: HYPERTENSION
     Dosage: 1DF DAILY
     Route: 048
     Dates: start: 20090804, end: 20100621
  2. CO-DIOVAN [Suspect]
     Dosage: 0.5DF
     Route: 048
     Dates: start: 20100622
  3. BASEN [Concomitant]
     Dosage: 0.9 MG
     Route: 048
     Dates: start: 20080118, end: 20091120
  4. STARSIS [Concomitant]
     Dosage: 270 MG
     Route: 048
     Dates: start: 20080118, end: 20091120
  5. OPALMON [Concomitant]
     Dosage: 15 MG
     Route: 048
     Dates: start: 20080118
  6. FAMOTIDINE [Concomitant]
     Dosage: 20 MG
     Route: 048
     Dates: start: 20080118
  7. MEXILETINE HYDROCHLORIDE [Concomitant]
     Dosage: 200 MG
     Route: 048
     Dates: start: 20080118
  8. SITAGLIPTIN PHOSPHATE [Concomitant]
     Dosage: 50 MG
     Route: 048
     Dates: start: 20080118

REACTIONS (2)
  - BLOOD PRESSURE DECREASED [None]
  - BRADYCARDIA [None]
